FAERS Safety Report 13645063 (Version 1)
Quarter: 2017Q2

REPORT INFORMATION
  Report Type: Spontaneous
  Country: US (occurrence: US)
  Receive Date: 20170612
  Receipt Date: 20170612
  Transmission Date: 20170830
  Serious: No
  Sender: FDA-Public Use
  Company Number: US-ROCHE-1489375

PATIENT
  Age: 70 Year
  Sex: Female

DRUGS (2)
  1. XELODA [Suspect]
     Active Substance: CAPECITABINE
     Indication: BREAST CANCER
     Dosage: AM
     Route: 048
     Dates: start: 20140813, end: 20141107
  2. XELODA [Suspect]
     Active Substance: CAPECITABINE
     Dosage: PM
     Route: 048
     Dates: start: 20140813, end: 20141107

REACTIONS (6)
  - Skin discolouration [Unknown]
  - Skin striae [Unknown]
  - Dry skin [Unknown]
  - Pain of skin [Unknown]
  - Skin reaction [Unknown]
  - Rash [Unknown]

NARRATIVE: CASE EVENT DATE: 20141103
